FAERS Safety Report 20340274 (Version 1)
Quarter: 2022Q1

REPORT INFORMATION
  Report Type: Report from Study
  Country: US (occurrence: None)
  Receive Date: 20220117
  Receipt Date: 20220117
  Transmission Date: 20220423
  Serious: Yes (Hospitalization)
  Sender: FDA-Public Use
  Company Number: US-ROCHE-2903612

PATIENT
  Age: 73 Year
  Sex: Female
  Weight: 157 kg

DRUGS (8)
  1. ATEZOLIZUMAB [Suspect]
     Active Substance: ATEZOLIZUMAB
     Indication: Ovarian cancer
     Dosage: DATE OF LAST ADMINISTRATION: 18/MAR/2021
     Route: 042
     Dates: start: 20210128
  2. ATEZOLIZUMAB [Suspect]
     Active Substance: ATEZOLIZUMAB
     Dosage: DATE OF LAST ADMINISTRATION: 01/APR/2021
     Route: 042
     Dates: start: 20210128
  3. BEVACIZUMAB [Suspect]
     Active Substance: BEVACIZUMAB
     Indication: Ovarian cancer
     Dosage: DATE OF LAST ADMINISTRATION: 18/MAR/2021
     Route: 042
     Dates: start: 20210128
  4. BEVACIZUMAB [Suspect]
     Active Substance: BEVACIZUMAB
     Dosage: DATE OF LAST ADMINISTRATION: 01/APR/2021
     Route: 042
     Dates: start: 20210128
  5. DOXORUBICIN HYDROCHLORIDE [Suspect]
     Active Substance: DOXORUBICIN HYDROCHLORIDE
     Indication: Ovarian cancer
     Dosage: DATE OF LAST ADMINISTRATION: 04/MAR/2021
     Route: 042
     Dates: start: 20210128
  6. DOXORUBICIN HYDROCHLORIDE [Suspect]
     Active Substance: DOXORUBICIN HYDROCHLORIDE
     Dosage: DATE OF LAST ADMINISTRATION: 01/APR/2021
     Route: 042
     Dates: start: 20210128
  7. CARBOPLATIN [Concomitant]
     Active Substance: CARBOPLATIN
  8. PACLITAXEL [Concomitant]
     Active Substance: PACLITAXEL

REACTIONS (9)
  - Oxygen saturation decreased [Recovered/Resolved with Sequelae]
  - Pleural effusion [Recovered/Resolved with Sequelae]
  - Oesophageal pain [Unknown]
  - Blood pressure increased [Unknown]
  - Stomatitis [Unknown]
  - Palmar-plantar erythrodysaesthesia syndrome [Unknown]
  - Rash [Unknown]
  - Dysphagia [Unknown]
  - Oral pain [Unknown]

NARRATIVE: CASE EVENT DATE: 20210326
